FAERS Safety Report 6414791-1 (Version None)
Quarter: 2009Q4

REPORT INFORMATION
  Report Type: 
  Country: None (occurrence: None)
  Receive Date: 20091026
  Receipt Date: 20091026
  Transmission Date: 20100525
  Serious: Yes (Other)
  Sender: FDA-Public Use
  Company Number: None

PATIENT
  Sex: Male
  Weight: 125 kg

DRUGS (1)
  1. SIROLIMUS [Suspect]

REACTIONS (4)
  - BLISTER [None]
  - DRUG INEFFECTIVE [None]
  - RASH [None]
  - SKIN EXFOLIATION [None]
